FAERS Safety Report 9242347 (Version 1)
Quarter: 2013Q2

REPORT INFORMATION
  Report Type: Report from Study
  Country: CA (occurrence: CA)
  Receive Date: 20130419
  Receipt Date: 20130419
  Transmission Date: 20140414
  Serious: Yes (Other)
  Sender: FDA-Public Use
  Company Number: CA-JNJFOC-20130408322

PATIENT
  Age: 48 Year
  Sex: Female

DRUGS (1)
  1. SIMPONI [Suspect]
     Indication: ANKYLOSING SPONDYLITIS
     Route: 065
     Dates: start: 20110309

REACTIONS (5)
  - Ovarian mass [Unknown]
  - Cardiac failure congestive [Unknown]
  - Nausea [Unknown]
  - Local swelling [Unknown]
  - Hypersomnia [Unknown]
